FAERS Safety Report 8352771-X (Version None)
Quarter: 2012Q2

REPORT INFORMATION
  Report Type: 
  Country: None (occurrence: None)
  Receive Date: 20120511
  Receipt Date: 20120503
  Transmission Date: 20120825
  Serious: Yes (Other)
  Sender: FDA-Public Use
  Company Number: DE-ASTELLAS-2012US004602

PATIENT
  Age: 72 Year
  Sex: Female

DRUGS (2)
  1. TARCEVA [Suspect]
     Indication: NON-SMALL CELL LUNG CANCER
     Dosage: 150 MG, UNKNOWN/D
     Route: 048
     Dates: start: 20120101, end: 20120501
  2. TARCEVA [Suspect]
     Dosage: 100 MG, UID/QD
     Route: 048
     Dates: start: 20120501

REACTIONS (5)
  - HEART RATE INCREASED [None]
  - CARDIOVASCULAR DISORDER [None]
  - PRURITUS [None]
  - PALPITATIONS [None]
  - DECREASED APPETITE [None]
